FAERS Safety Report 8471913-9 (Version None)
Quarter: 2012Q2

REPORT INFORMATION
  Report Type: 
  Country: None (occurrence: None)
  Receive Date: 20120627
  Receipt Date: 20120618
  Transmission Date: 20120825
  Serious: Yes (Other)
  Sender: FDA-Public Use
  Company Number: US-ABBOTT-12P-163-0947013-00

PATIENT

DRUGS (2)
  1. CORTISONE ACETATE [Suspect]
     Indication: PRODUCT USED FOR UNKNOWN INDICATION
  2. HUMIRA [Suspect]
     Indication: CROHN'S DISEASE

REACTIONS (14)
  - FEELING COLD [None]
  - PARAESTHESIA [None]
  - BACK PAIN [None]
  - PAIN [None]
  - SINUS DISORDER [None]
  - SEASONAL ALLERGY [None]
  - PAIN IN EXTREMITY [None]
  - HYPOAESTHESIA [None]
  - DIABETES MELLITUS [None]
  - THIRST [None]
  - URTICARIA [None]
  - BURNING SENSATION [None]
  - POLLAKIURIA [None]
  - RED BLOOD CELL SEDIMENTATION RATE INCREASED [None]
